FAERS Safety Report 19716452 (Version 1)
Quarter: 2021Q3

REPORT INFORMATION
  Report Type: Spontaneous
  Country: GB (occurrence: GB)
  Receive Date: 20210818
  Receipt Date: 20210818
  Transmission Date: 20211014
  Serious: Yes (Other)
  Sender: FDA-Public Use
  Company Number: GB-HIKMA PHARMACEUTICALS USA INC.-GB-H14001-21-55157

PATIENT
  Age: 39 Year
  Sex: Male
  Weight: 63 kg

DRUGS (2)
  1. COCODAMOL [Concomitant]
     Active Substance: ACETAMINOPHEN\CODEINE PHOSPHATE
     Indication: PRODUCT USED FOR UNKNOWN INDICATION
     Dosage: 30/500
     Route: 065
  2. CIPROFLOXACIN HYDROCHLORIDE. [Suspect]
     Active Substance: CIPROFLOXACIN HYDROCHLORIDE
     Indication: PRODUCT USED FOR UNKNOWN INDICATION
     Dosage: UNKNOWN
     Route: 026
     Dates: start: 20190403, end: 20190603

REACTIONS (12)
  - Restlessness [Unknown]
  - Gait disturbance [Not Recovered/Not Resolved]
  - Arterial haemorrhage [Unknown]
  - Neuralgia [Unknown]
  - Hepatic failure [Unknown]
  - Toe operation [Unknown]
  - Insomnia [Unknown]
  - Internal haemorrhage [Not Recovered/Not Resolved]
  - Feeling abnormal [Unknown]
  - Feeding disorder [Not Recovered/Not Resolved]
  - Thrombosis [Not Recovered/Not Resolved]
  - Illness [Unknown]

NARRATIVE: CASE EVENT DATE: 20190403
